FAERS Safety Report 5287097-4 (Version None)
Quarter: 2007Q1

REPORT INFORMATION
  Report Type: 
  Country: None (occurrence: None)
  Receive Date: 20070330
  Receipt Date: 20070323
  Transmission Date: 20070707
  Serious: Yes (Other)
  Sender: FDA-Public Use
  Company Number: 2007BI006622

PATIENT
  Age: 64 Year
  Sex: Male

DRUGS (1)
  1. NATALIZUMAB [Suspect]
     Indication: MULTIPLE SCLEROSIS
     Dosage: 300 MG; QM; IV
     Route: 042
     Dates: start: 20070110, end: 20070220

REACTIONS (1)
  - HODGKIN'S DISEASE [None]
